FAERS Safety Report 12566209 (Version 1)
Quarter: 2020Q3

REPORT INFORMATION
  Report Type: Report from Study
  Country: US (occurrence: US)
  Receive Date: 20160718
  Receipt Date: 20160718
  Transmission Date: 20201104
  Serious: Yes (Hospitalization)
  Sender: FDA-Public Use
  Company Number: US-JNJFOC-20160617853

PATIENT
  Age: 80 Year
  Sex: Female
  Weight: 94 kg

DRUGS (4)
  1. DOXIL [Suspect]
     Active Substance: DOXORUBICIN HYDROCHLORIDE
     Indication: FALLOPIAN TUBE CANCER
     Route: 042
     Dates: start: 20160512, end: 20160517
  2. TRABECTEDIN [Suspect]
     Active Substance: TRABECTEDIN
     Indication: FALLOPIAN TUBE CANCER
     Route: 042
     Dates: start: 20160419
  3. TRABECTEDIN [Suspect]
     Active Substance: TRABECTEDIN
     Indication: FALLOPIAN TUBE CANCER
     Route: 042
     Dates: start: 20160510, end: 20160510
  4. DOXIL [Suspect]
     Active Substance: DOXORUBICIN HYDROCHLORIDE
     Indication: FALLOPIAN TUBE CANCER
     Route: 042
     Dates: start: 20160419

REACTIONS (1)
  - Pleural effusion [Recovered/Resolved]

NARRATIVE: CASE EVENT DATE: 20160512
